FAERS Safety Report 5463272-0 (Version None)
Quarter: 2007Q3

REPORT INFORMATION
  Report Type: 
  Country: None (occurrence: None)
  Receive Date: 20070920
  Receipt Date: 20070918
  Transmission Date: 20080115
  Serious: Yes (Hospitalization)
  Sender: FDA-Public Use
  Company Number: B010341

PATIENT
  Age: 35 Year
  Sex: Female

DRUGS (2)
  1. KENALOG-40 [Suspect]
     Indication: RHEUMATOID ARTHRITIS
     Route: 050
     Dates: start: 19880414, end: 19880414
  2. XYLOCAINE [Concomitant]
     Route: 050
     Dates: start: 19880414, end: 19880414

REACTIONS (1)
  - ANAPHYLACTIC SHOCK [None]
